FAERS Safety Report 5356889-5 (Version None)
Quarter: 2007Q2

REPORT INFORMATION
  Report Type: 
  Country: None (occurrence: None)
  Receive Date: 20070530
  Receipt Date: 20061013
  Transmission Date: 20071010
  Serious: Yes (Hospitalization)
  Sender: FDA-Public Use
  Company Number: US200608003228

PATIENT
  Age: 40 Year
  Sex: Male
  Weight: 59 kg

DRUGS (3)
  1. ZYPREXA [Suspect]
     Dosage: 10 MG
     Dates: start: 19970101
  2. QUETIAPINE FUMARATE [Concomitant]
  3. ATENOLOL [Concomitant]

REACTIONS (3)
  - HYPERGLYCAEMIA [None]
  - OBESITY [None]
  - PANCREATITIS [None]
